FAERS Safety Report 7937477-0 (Version None)
Quarter: 2011Q4

REPORT INFORMATION
  Report Type: 
  Country: None (occurrence: None)
  Receive Date: 20111123
  Receipt Date: 20111118
  Transmission Date: 20120403
  Serious: Yes (Other)
  Sender: FDA-Public Use
  Company Number: FR-BRISTOL-MYERS SQUIBB COMPANY-16242612

PATIENT
  Age: 51 Year
  Sex: Female

DRUGS (2)
  1. VALPROIC ACID [Suspect]
     Route: 048
     Dates: start: 20050915, end: 20060401
  2. ABILIFY [Suspect]
     Route: 048
     Dates: start: 20050915, end: 20060401

REACTIONS (5)
  - ANXIETY [None]
  - HALLUCINATION [None]
  - CONFUSIONAL STATE [None]
  - BALANCE DISORDER [None]
  - SPEECH DISORDER [None]
